FAERS Safety Report 19744688 (Version 1)
Quarter: 2021Q3

REPORT INFORMATION
  Report Type: Spontaneous
  Country: DE (occurrence: DE)
  Receive Date: 20210825
  Receipt Date: 20210825
  Transmission Date: 20211014
  Serious: Yes (Hospitalization)
  Sender: FDA-Public Use
  Company Number: DE-TEVA-2021-DE-1944206

PATIENT
  Age: 73 Year
  Sex: Female
  Weight: 60 kg

DRUGS (14)
  1. METAMIZOL [Suspect]
     Active Substance: METAMIZOLE SODIUM
     Dosage: 2000 MILLIGRAM DAILY; 500 MG, 1?1?1?1
     Route: 065
  2. ALLOPURINOL. [Suspect]
     Active Substance: ALLOPURINOL
     Dosage: 300 MILLIGRAM DAILY; 300 MG, 0?1?0?0
     Route: 065
  3. KALIUMCITRAT [Suspect]
     Active Substance: POTASSIUM CITRATE
     Dosage: 9 GRAM DAILY; 4.5 G, 1?0?1?0
  4. TILIDINE/NALOXONE [Suspect]
     Active Substance: NALOXONE HYDROCHLORIDE\TILIDINE HYDROCHLORIDE
     Dosage: 2 DOSAGE FORMS DAILY; 50|4 MG, 1?0?0?1
  5. APIXABAN [Suspect]
     Active Substance: APIXABAN
     Dosage: 10 MILLIGRAM DAILY; 5 MG, 1?0?1?0
     Route: 065
  6. ALISKIREN AND HYDROCHLOROTHIAZIDE [Suspect]
     Active Substance: ALISKIREN\HYDROCHLOROTHIAZIDE
     Dosage: 25 MILLIGRAM DAILY; 12.5 MG, 1?0?1?0
     Route: 065
  7. TORASEMID [Suspect]
     Active Substance: TORSEMIDE
     Dosage: 5 MG, 2?1?0?0
     Route: 065
  8. MACROGOL [Suspect]
     Active Substance: POLYETHYLENE GLYCOLS
     Dosage: 13.8 GRAM DAILY; 13.8 G, 1?0?0?0
     Route: 065
  9. FOLSAEURE [Suspect]
     Active Substance: FOLIC ACID
     Dosage: .4 MILLIGRAM DAILY; 0.4 MG, 1?0?0?0
     Route: 065
  10. HYDROMORPHON/NALOXON [Suspect]
     Active Substance: HYDROMORPHONE HYDROCHLORIDE\NALOXONE HYDROCHLORIDE
     Dosage: 1.3 MG, AS NEEDED
     Route: 065
  11. VALSARTAN. [Suspect]
     Active Substance: VALSARTAN
     Dosage: 160 MILLIGRAM DAILY; 80 MG, 1?0?1?0
     Route: 065
  12. TROSPIUM [Suspect]
     Active Substance: TROSPIUM
     Dosage: 60 MILLIGRAM DAILY;  1?0?0?0
     Route: 065
  13. PANTOPRAZOL [Suspect]
     Active Substance: PANTOPRAZOLE SODIUM
     Dosage: 40 MILLIGRAM DAILY; 40 MG, 1?0?0?0
     Route: 065
  14. COLECALCIFEROL [Suspect]
     Active Substance: CHOLECALCIFEROL
     Dosage: 1000 IU (INTERNATIONAL UNIT) DAILY; 1?0?0?0
     Route: 065

REACTIONS (3)
  - Haematochezia [Unknown]
  - Dizziness [Unknown]
  - Dementia [Unknown]
